FAERS Safety Report 24574645 (Version 2)
Quarter: 2024Q4

REPORT INFORMATION
  Report Type: Spontaneous
  Country: DE (occurrence: DE)
  Receive Date: 20241104
  Receipt Date: 20241231
  Transmission Date: 20250115
  Serious: Yes (Hospitalization)
  Sender: AMGEN
  Company Number: DE-002147023-NVSC2024DE209489

PATIENT
  Sex: Female
  Weight: 93 kg

DRUGS (2)
  1. AIMOVIG [Suspect]
     Active Substance: ERENUMAB\ERENUMAB-AOOE
     Indication: Migraine
     Dosage: UNK, QMO
     Route: 065
     Dates: start: 20240924
  2. AIMOVIG [Suspect]
     Active Substance: ERENUMAB\ERENUMAB-AOOE
     Dosage: UNK, QMO
     Route: 065
     Dates: start: 20241022

REACTIONS (11)
  - Eye swelling [Recovered/Resolved]
  - Lip swelling [Recovered/Resolved]
  - Erythema [Recovered/Resolved]
  - Skin burning sensation [Recovered/Resolved]
  - Erythema [Recovered/Resolved]
  - Rash [Recovered/Resolved]
  - Papule [Unknown]
  - Pruritus [Unknown]
  - Oedema [Unknown]
  - Swelling of eyelid [Unknown]
  - Lip swelling [Unknown]

NARRATIVE: CASE EVENT DATE: 20241001
